FAERS Safety Report 6014549-1 (Version None)
Quarter: 2008Q4

REPORT INFORMATION
  Report Type: 
  Country: None (occurrence: None)
  Receive Date: 20081219
  Receipt Date: 20080812
  Transmission Date: 20090506
  Serious: No
  Sender: FDA-Public Use
  Company Number: A0742222A

PATIENT
  Sex: Male

DRUGS (3)
  1. AVODART [Suspect]
     Indication: BENIGN PROSTATIC HYPERPLASIA
     Dosage: .5MG PER DAY
     Route: 048
     Dates: start: 20080626, end: 20080711
  2. BENICAR [Concomitant]
  3. DILTIAZEM [Concomitant]

REACTIONS (2)
  - CONSTIPATION [None]
  - RASH GENERALISED [None]
